FAERS Safety Report 5382045-0 (Version None)
Quarter: 2007Q3

REPORT INFORMATION
  Report Type: 
  Country: None (occurrence: None)
  Receive Date: 20070705
  Receipt Date: 20070629
  Transmission Date: 20080115
  Serious: No
  Sender: FDA-Public Use
  Company Number: 48258

PATIENT
  Age: 18 Month
  Sex: Female

DRUGS (1)
  1. LORATADINE [Suspect]
     Dosage: 10 MG/ORAL
     Route: 048
     Dates: start: 20070621, end: 20070621

REACTIONS (3)
  - ABNORMAL BEHAVIOUR [None]
  - ACCIDENTAL DRUG INTAKE BY CHILD [None]
  - LETHARGY [None]
